FAERS Safety Report 24129412 (Version 2)
Quarter: 2024Q3

REPORT INFORMATION
  Report Type: Report from Study
  Country: CA (occurrence: CA)
  Receive Date: 20240723
  Receipt Date: 20240917
  Transmission Date: 20241017
  Serious: Yes (Other)
  Sender: ABBVIE
  Company Number: CA-ABBVIE-5845812

PATIENT
  Age: 68 Year
  Sex: Female

DRUGS (1)
  1. SKYRIZI [Suspect]
     Active Substance: RISANKIZUMAB-RZAA
     Indication: Psoriasis
     Route: 058
     Dates: start: 20210922, end: 202407

REACTIONS (6)
  - Hepatic cancer [Unknown]
  - Lung neoplasm malignant [Not Recovered/Not Resolved]
  - Cough [Unknown]
  - Pulmonary mass [Unknown]
  - Intrapulmonary lymphadenopathy [Unknown]
  - Muscle strain [Unknown]

NARRATIVE: CASE EVENT DATE: 20240529
